FAERS Safety Report 7074079-5 (Version None)
Quarter: 2010Q4

REPORT INFORMATION
  Report Type: 
  Country: None (occurrence: None)
  Receive Date: 20101029
  Receipt Date: 20101018
  Transmission Date: 20110411
  Serious: Yes (Other)
  Sender: FDA-Public Use
  Company Number: FR-PFIZER INC-2010133040

PATIENT
  Age: 75 Year
  Sex: Female

DRUGS (6)
  1. LYRICA [Suspect]
     Dosage: 175 MG, 2X/DAY
     Dates: start: 20070101
  2. OXYCONTIN [Concomitant]
     Dosage: UNK, 2X/DAY
  3. ISOPTIN [Concomitant]
  4. AMITRIPTYLINE HCL [Concomitant]
  5. RIVOTRIL [Concomitant]
  6. ART 50 [Concomitant]

REACTIONS (3)
  - ACCOMMODATION DISORDER [None]
  - VISUAL ACUITY REDUCED [None]
  - VITREOUS OPACITIES [None]
